FAERS Safety Report 7549643-7 (Version None)
Quarter: 2011Q2

REPORT INFORMATION
  Report Type: 
  Country: None (occurrence: None)
  Receive Date: 20110615
  Receipt Date: 20110520
  Transmission Date: 20111010
  Serious: Yes (Other)
  Sender: FDA-Public Use
  Company Number: GB-TEVA-285459ISR

PATIENT
  Sex: Female

DRUGS (1)
  1. LEVONORGESTREL [Suspect]
     Indication: POST COITAL CONTRACEPTION
     Route: 048
     Dates: start: 20110301, end: 20110301

REACTIONS (3)
  - ABORTION SPONTANEOUS [None]
  - PREGNANCY AFTER POST COITAL CONTRACEPTION [None]
  - DRUG EXPOSURE DURING PREGNANCY [None]
